FAERS Safety Report 19700280 (Version 1)
Quarter: 2021Q3

REPORT INFORMATION
  Report Type: Spontaneous
  Country: CA (occurrence: CA)
  Receive Date: 20210813
  Receipt Date: 20210813
  Transmission Date: 20211014
  Serious: Yes (Other)
  Sender: FDA-Public Use
  Company Number: CA-PFIZER INC-202101006984

PATIENT
  Age: 34 Year
  Sex: Female
  Weight: 81 kg

DRUGS (5)
  1. QUETIAPINE. [Suspect]
     Active Substance: QUETIAPINE
     Dosage: 100 MG, 1X/DAY
     Route: 065
  2. BENZOYL PEROXIDE. [Suspect]
     Active Substance: BENZOYL PEROXIDE
     Dosage: 1 DF, 1X/DAY
     Route: 061
  3. ERYTHROMYCIN. [Suspect]
     Active Substance: ERYTHROMYCIN
     Dosage: 1 DF, 1X/DAY
  4. DULOXETINE HYDROCHLORIDE. [Suspect]
     Active Substance: DULOXETINE HYDROCHLORIDE
     Dosage: 30 MG, UNK
     Route: 048
  5. BUPROPION. [Suspect]
     Active Substance: BUPROPION
     Dosage: 300 MG, 1X/DAY
     Route: 065

REACTIONS (1)
  - Abortion spontaneous [Unknown]
